FAERS Safety Report 12442887 (Version 1)
Quarter: 2016Q2

REPORT INFORMATION
  Report Type: Spontaneous
  Country: US (occurrence: None)
  Receive Date: 20160606
  Receipt Date: 20160606
  Transmission Date: 20160815
  Serious: Yes (Other)
  Sender: FDA-Public Use
  Company Number: None

PATIENT
  Age: 42 Year
  Sex: Female
  Weight: 72.58 kg

DRUGS (11)
  1. MUCINEX [Concomitant]
     Active Substance: GUAIFENESIN
  2. HYDROXYCHLOROQUINE [Concomitant]
     Active Substance: HYDROXYCHLOROQUINE
  3. CALCIUM [Concomitant]
     Active Substance: CALCIUM
  4. MAGNESIUM [Concomitant]
     Active Substance: MAGNESIUM
  5. SPIRIVA [Concomitant]
     Active Substance: TIOTROPIUM BROMIDE MONOHYDRATE
  6. VALSARTAN. [Concomitant]
     Active Substance: VALSARTAN
  7. PROBIOTICS [Concomitant]
     Active Substance: PROBIOTICS NOS
  8. OXYGEN. [Concomitant]
     Active Substance: OXYGEN
  9. ADVAIR HFA [Concomitant]
     Active Substance: FLUTICASONE PROPIONATE\SALMETEROL XINAFOATE
  10. VIT B COMPLEX [Concomitant]
  11. SIROLIMUS. [Suspect]
     Active Substance: SIROLIMUS
     Indication: LYMPHANGIOLEIOMYOMATOSIS
     Dosage: 3 TABLET(S) IN THE MORNING TAKEN BY MOUTH
     Route: 048
     Dates: start: 20150428, end: 20160412

REACTIONS (6)
  - Drug ineffective [None]
  - Respiratory disorder [None]
  - Disease recurrence [None]
  - Product substitution issue [None]
  - Lymphangioleiomyomatosis [None]
  - Hepatic enzyme increased [None]

NARRATIVE: CASE EVENT DATE: 20160412
